FAERS Safety Report 7578525-X (Version None)
Quarter: 2011Q2

REPORT INFORMATION
  Report Type: 
  Country: None (occurrence: None)
  Receive Date: 20110628
  Receipt Date: 20110614
  Transmission Date: 20111010
  Serious: Yes (Hospitalization)
  Sender: FDA-Public Use
  Company Number: JP-JNJFOC-20100908402

PATIENT
  Sex: Male
  Weight: 90 kg

DRUGS (26)
  1. REMICADE [Suspect]
     Dosage: 8 INFUSIONS TOTAL
     Dates: start: 20100105
  2. REMICADE [Suspect]
     Dates: start: 20091117
  3. PREDNISOLONE [Concomitant]
     Route: 048
     Dates: start: 20101028
  4. REMICADE [Suspect]
     Dates: start: 20100426
  5. REMICADE [Suspect]
     Dates: start: 20101007
  6. PREDNISOLONE [Concomitant]
     Route: 048
     Dates: start: 20080824, end: 20090823
  7. REMICADE [Suspect]
     Dates: start: 20100811
  8. PREDNISOLONE [Concomitant]
     Route: 048
     Dates: start: 20100929, end: 20101013
  9. REMICADE [Suspect]
     Dates: start: 20110112
  10. REMICADE [Suspect]
     Dates: start: 20100302
  11. REMICADE [Suspect]
     Dates: start: 20090526
  12. REMICADE [Suspect]
     Dates: start: 20090310
  13. REMICADE [Suspect]
     Indication: BEHCET'S SYNDROME
     Dates: start: 20100623
  14. REMICADE [Suspect]
     Dates: start: 20101124
  15. REMICADE [Suspect]
     Dates: start: 20090929
  16. REMICADE [Suspect]
     Dates: start: 20090728
  17. SANDIMMUNE [Suspect]
     Indication: BEHCET'S SYNDROME
     Route: 048
     Dates: start: 20080824, end: 20100922
  18. BRONUCK [Concomitant]
     Indication: BEHCET'S SYNDROME
     Dosage: BOTH EYES
     Route: 047
     Dates: start: 20090224
  19. REMICADE [Suspect]
     Dates: start: 20090331
  20. REMICADE [Suspect]
     Dates: start: 20090224
  21. PREDNISOLONE [Concomitant]
     Indication: BEHCET'S SYNDROME
     Route: 048
     Dates: start: 20100923, end: 20100928
  22. PREDNISOLONE [Concomitant]
     Route: 048
     Dates: start: 20100812, end: 20100922
  23. PREDNISOLONE [Concomitant]
     Route: 048
     Dates: start: 20101014, end: 20101027
  24. PREDNISOLONE [Concomitant]
     Route: 048
     Dates: start: 20090824, end: 20100811
  25. ANTIHISTAMINES [Concomitant]
     Indication: PREMEDICATION
     Dates: start: 20090224, end: 20110112
  26. XALATAN [Concomitant]
     Indication: BEHCET'S SYNDROME
     Dosage: BOTH EYES
     Route: 047
     Dates: start: 20090224

REACTIONS (3)
  - LOSS OF CONSCIOUSNESS [None]
  - CENTRAL NERVOUS SYSTEM LESION [None]
  - NERVOUS SYSTEM DISORDER [None]
